FAERS Safety Report 4527360-5 (Version None)
Quarter: 2004Q4

REPORT INFORMATION
  Report Type: 
  Country: None (occurrence: None)
  Receive Date: 20041130
  Receipt Date: 20040901
  Transmission Date: 20050328
  Serious: No
  Sender: FDA-Public Use
  Company Number: FABR-10694

PATIENT
  Age: 47 Year
  Sex: Female
  Weight: 54.8852 kg

DRUGS (4)
  1. FABRAZYME [Suspect]
     Indication: FABRY'S DISEASE
     Dosage: 1 MG/KG Q2WKS IV
     Route: 042
     Dates: start: 20031101
  2. ASPIRIN [Concomitant]
  3. LISINOPRIL [Concomitant]
  4. NORTRYPTILINE [Concomitant]

REACTIONS (1)
  - DENTAL CARIES [None]
